FAERS Safety Report 15477860 (Version 2)
Quarter: 2018Q4

REPORT INFORMATION
  Report Type: Spontaneous
  Country: FR (occurrence: FR)
  Receive Date: 20181009
  Receipt Date: 20181219
  Transmission Date: 20190205
  Serious: Yes (Hospitalization, Other)
  Sender: FDA-Public Use
  Company Number: FR-PROVELL PHARMACEUTICALS-2055826

PATIENT
  Age: 74 Year
  Sex: Female
  Weight: 69 kg

DRUGS (34)
  1. EUTHYROX [Suspect]
     Active Substance: LEVOTHYROXINE SODIUM
  2. RABEPRAZOLE ACTAVIS [Concomitant]
     Dates: start: 20170620
  3. SIMVASTATIN. [Concomitant]
     Active Substance: SIMVASTATIN
     Dates: start: 20170620
  4. ACTISKENAN [Concomitant]
     Active Substance: MORPHINE SULFATE
     Dates: start: 20161226
  5. LOVENOX [Concomitant]
     Active Substance: ENOXAPARIN SODIUM
     Dates: start: 20170511
  6. OXYNORMORO [Concomitant]
     Active Substance: OXYCODONE HYDROCHLORIDE
     Dates: start: 20170620
  7. OXYCONTIN [Concomitant]
     Active Substance: OXYCODONE HYDROCHLORIDE
     Dates: start: 20170607, end: 20170621
  8. KARDEGIC [Concomitant]
     Active Substance: ASPIRIN DL-LYSINE
     Dates: start: 20161226
  9. RABEPRAZOLE ACTAVIS [Concomitant]
     Dates: start: 20161226
  10. VERAPAMIL [Concomitant]
     Active Substance: VERAPAMIL HYDROCHLORIDE
     Dates: start: 20170512
  11. ZOLPIDEM [Concomitant]
     Active Substance: ZOLPIDEM\ZOLPIDEM TARTRATE
     Dates: start: 20170620
  12. RISEDRONATE [Concomitant]
     Active Substance: RISEDRONATE SODIUM
     Dates: start: 20170515
  13. SIMVASTATIN. [Concomitant]
     Active Substance: SIMVASTATIN
     Dates: start: 20161226
  14. VENTOLINE [Concomitant]
     Active Substance: ALBUTEROL
     Dates: start: 20161226
  15. FUROSEMIDE. [Concomitant]
     Active Substance: FUROSEMIDE
     Dates: start: 20170620
  16. TRANSIPEG [Concomitant]
     Dates: start: 20170614
  17. LOVENOX [Concomitant]
     Active Substance: ENOXAPARIN SODIUM
     Dates: start: 20170620
  18. MONTELUKAST [Concomitant]
     Active Substance: MONTELUKAST SODIUM
     Dates: start: 20170620
  19. PARACETAMOL [Concomitant]
     Active Substance: ACETAMINOPHEN
     Dates: start: 20161226
  20. TRANSIPEG [Concomitant]
     Dates: start: 20170620
  21. LANSOYL [Concomitant]
     Active Substance: MINERAL OIL
     Route: 048
     Dates: start: 20170518
  22. OXYNORMORO [Concomitant]
     Active Substance: OXYCODONE HYDROCHLORIDE
     Dates: start: 20170606, end: 20170704
  23. EUTHYROX [Suspect]
     Active Substance: LEVOTHYROXINE SODIUM
     Dates: start: 1968
  24. VENTOLINE [Concomitant]
     Active Substance: ALBUTEROL
     Dates: start: 20170620
  25. FUROSEMIDE. [Concomitant]
     Active Substance: FUROSEMIDE
     Dates: start: 20161226
  26. RISEDRONATE [Concomitant]
     Active Substance: RISEDRONATE SODIUM
     Dates: start: 20170620
  27. OXYCONTIN [Concomitant]
     Active Substance: OXYCODONE HYDROCHLORIDE
     Dates: start: 20170620
  28. EUTHYROX [Suspect]
     Active Substance: LEVOTHYROXINE SODIUM
     Indication: HYPOTHYROIDISM
  29. DIFFU K [Concomitant]
     Active Substance: POTASSIUM CHLORIDE
     Dates: start: 20161226
  30. KARDEGIC [Concomitant]
     Active Substance: ASPIRIN DL-LYSINE
     Dates: start: 20170620
  31. TRANSIPEG [Concomitant]
     Dates: start: 20161226
  32. STILNOX [Concomitant]
     Active Substance: ZOLPIDEM TARTRATE
     Dates: start: 20161226
  33. LANSOYL [Concomitant]
     Active Substance: MINERAL OIL
     Route: 048
     Dates: start: 20170620
  34. SODIUM CHLORIDE. [Concomitant]
     Active Substance: SODIUM CHLORIDE
     Route: 045
     Dates: start: 20170616, end: 20170621

REACTIONS (5)
  - Fall [Recovered/Resolved]
  - Device dislocation [None]
  - Foot fracture [None]
  - Haematoma [None]
  - Implant site haematoma [None]
